FAERS Safety Report 6639193-4 (Version None)
Quarter: 2010Q1

REPORT INFORMATION
  Report Type: 
  Country: None (occurrence: None)
  Receive Date: 20100312
  Receipt Date: 20100305
  Transmission Date: 20100710
  Serious: Yes (Other)
  Sender: FDA-Public Use
  Company Number: 2010SP011863

PATIENT
  Age: 60 Year
  Sex: Male

DRUGS (7)
  1. DECA-DURABOLIN [Suspect]
     Indication: NEOPLASM MALIGNANT
     Dosage: 50 MG;ONCE ; 50 MG;ONCE
     Dates: start: 20091201
  2. DECA-DURABOLIN [Suspect]
     Indication: SUPPORTIVE CARE
     Dosage: 50 MG;ONCE ; 50 MG;ONCE
     Dates: start: 20091201
  3. DECA-DURABOLIN [Suspect]
     Indication: NEOPLASM MALIGNANT
     Dosage: 50 MG;ONCE ; 50 MG;ONCE
     Dates: start: 20100101
  4. DECA-DURABOLIN [Suspect]
     Indication: SUPPORTIVE CARE
     Dosage: 50 MG;ONCE ; 50 MG;ONCE
     Dates: start: 20100101
  5. PROSCAR [Concomitant]
  6. SUPERAMIN [Concomitant]
  7. FISIOTENS [Concomitant]

REACTIONS (2)
  - LYMPHADENOPATHY [None]
  - WEIGHT DECREASED [None]
